FAERS Safety Report 6524745-2 (Version None)
Quarter: 2009Q4

REPORT INFORMATION
  Report Type: 
  Country: None (occurrence: None)
  Receive Date: 20091230
  Receipt Date: 20091230
  Transmission Date: 20100525
  Serious: No
  Sender: FDA-Public Use
  Company Number: None

PATIENT
  Age: 77 Year
  Sex: Female
  Weight: 81.1939 kg

DRUGS (1)
  1. NIACIN (NIASPAN) [Suspect]
     Indication: BLOOD CHOLESTEROL
     Dosage: ONE TAB DAY 1 TAB BEDTIME BY MOUTH
     Route: 048
     Dates: start: 20091106, end: 20091208

REACTIONS (5)
  - BURNING SENSATION [None]
  - FLUSHING [None]
  - PERIPHERAL VASCULAR DISORDER [None]
  - PRURITUS [None]
  - SWELLING [None]
